FAERS Safety Report 6495283-0 (Version None)
Quarter: 2009Q4

REPORT INFORMATION
  Report Type: 
  Country: None (occurrence: None)
  Receive Date: 20091214
  Receipt Date: 20090521
  Transmission Date: 20100525
  Serious: No
  Sender: FDA-Public Use
  Company Number: US-BRISTOL-MYERS SQUIBB COMPANY-14633796

PATIENT
  Age: 64 Year
  Sex: Female
  Weight: 77 kg

DRUGS (5)
  1. ABILIFY [Suspect]
     Indication: DEPRESSION
     Dosage: INITIATED AT A DOSE OF 2MG WITH INCREASE TO 10 MG, THEN 5MG QD HS
     Dates: start: 20090101
  2. CYMBALTA [Suspect]
  3. ADDERALL 10 [Suspect]
     Dosage: TAKEN IN THE MORNING
  4. HYDROCODONE [Concomitant]
  5. XANAX [Concomitant]

REACTIONS (3)
  - DISTURBANCE IN ATTENTION [None]
  - FATIGUE [None]
  - WEIGHT INCREASED [None]
